FAERS Safety Report 17859048 (Version 1)
Quarter: 2020Q2

REPORT INFORMATION
  Report Type: Spontaneous
  Country: US (occurrence: US)
  Receive Date: 20200603
  Receipt Date: 20200603
  Transmission Date: 20200714
  Serious: Yes (Other)
  Sender: FDA-Public Use
  Company Number: None

PATIENT
  Age: 67 Year
  Sex: Female
  Weight: 68.5 kg

DRUGS (3)
  1. CONVALESCENT PLASMA [Concomitant]
     Active Substance: HUMAN PLASMA
     Dates: start: 20200515, end: 20200515
  2. REMDESIVIR. [Suspect]
     Active Substance: REMDESIVIR
     Indication: COVID-19
     Dosage: ?          OTHER FREQUENCY:ONCE;?
     Route: 040
     Dates: start: 20200514, end: 20200514
  3. REMDESIVIR. [Suspect]
     Active Substance: REMDESIVIR
     Indication: COVID-19
     Route: 040
     Dates: start: 20200515, end: 20200518

REACTIONS (9)
  - Hypoperfusion [None]
  - Jugular vein thrombosis [None]
  - Sepsis [None]
  - Acute kidney injury [None]
  - Pneumonia [None]
  - Aspartate aminotransferase increased [None]
  - Blood bilirubin increased [None]
  - Alanine aminotransferase increased [None]
  - Acute respiratory distress syndrome [None]

NARRATIVE: CASE EVENT DATE: 20200519
